FAERS Safety Report 21252956 (Version 2)
Quarter: 2022Q3

REPORT INFORMATION
  Report Type: Report from Study
  Country: FR (occurrence: FR)
  Receive Date: 20220825
  Receipt Date: 20220926
  Transmission Date: 20221026
  Serious: Yes (Hospitalization, Other)
  Sender: FDA-Public Use
  Company Number: FR-INSMED, INC.-2022-01579-FR

PATIENT
  Sex: Female

DRUGS (1)
  1. ARIKAYCE [Suspect]
     Active Substance: AMIKACIN
     Indication: Mycobacterium avium complex infection
     Dosage: 590 MILLIGRAM, QD
     Route: 055
     Dates: start: 20220601, end: 202208

REACTIONS (15)
  - Oxygen saturation decreased [Recovered/Resolved]
  - Epistaxis [Recovered/Resolved]
  - Bronchitis [Unknown]
  - Dyspnoea [Unknown]
  - Tongue dry [Unknown]
  - Glossitis [Recovered/Resolved]
  - Sputum discoloured [Unknown]
  - Dyspnoea exertional [Unknown]
  - Dry mouth [Unknown]
  - Aphonia [Unknown]
  - Hypoacusis [Recovered/Resolved]
  - Oral discomfort [Unknown]
  - Oropharyngeal pain [Unknown]
  - Vertigo [Unknown]
  - Cough [Unknown]

NARRATIVE: CASE EVENT DATE: 20220101
